FAERS Safety Report 17758233 (Version 3)
Quarter: 2020Q4

REPORT INFORMATION
  Report Type: Spontaneous
  Country: DE (occurrence: DE)
  Receive Date: 20200507
  Receipt Date: 20201209
  Transmission Date: 20210113
  Serious: Yes (Death, Hospitalization, Other)
  Sender: FDA-Public Use
  Company Number: DE-B.I. PHARMACEUTICALS,INC./RIDGEFIELD-2020-BI-022851

PATIENT
  Age: 46 Year
  Sex: Female

DRUGS (5)
  1. GILOTRIF [Suspect]
     Active Substance: AFATINIB
     Indication: EGFR GENE MUTATION
     Route: 048
     Dates: start: 20151217, end: 201803
  2. GILOTRIF [Suspect]
     Active Substance: AFATINIB
     Route: 048
     Dates: start: 201803, end: 20190430
  3. DENOSUMAB [Concomitant]
     Active Substance: DENOSUMAB
     Indication: PRODUCT USED FOR UNKNOWN INDICATION
     Dates: start: 201602
  4. CALCIUM;VITAMIN D NOS [Concomitant]
     Indication: PRODUCT USED FOR UNKNOWN INDICATION
     Dates: start: 201602
  5. GILOTRIF [Suspect]
     Active Substance: AFATINIB
     Indication: NON-SMALL CELL LUNG CANCER
     Route: 048
     Dates: start: 201512

REACTIONS (22)
  - Metastases to lung [Unknown]
  - Diarrhoea [Unknown]
  - Gastritis [Unknown]
  - Vomiting [Unknown]
  - Neck pain [Not Recovered/Not Resolved]
  - Death [Fatal]
  - Dehydration [Unknown]
  - Renal cyst [Unknown]
  - Unresponsive to stimuli [Unknown]
  - Skin disorder [Unknown]
  - Metastases to meninges [Not Recovered/Not Resolved]
  - Malignant neoplasm progression [Unknown]
  - Disorientation [Unknown]
  - Headache [Unknown]
  - Acne [Unknown]
  - Malignant neoplasm progression [Unknown]
  - Apathy [Unknown]
  - Nausea [Not Recovered/Not Resolved]
  - General physical health deterioration [Unknown]
  - Gastrooesophageal reflux disease [Unknown]
  - Inflammation [Unknown]
  - Conjunctivitis bacterial [Unknown]

NARRATIVE: CASE EVENT DATE: 20170221
